FAERS Safety Report 9134497 (Version 1)
Quarter: 2013Q1

REPORT INFORMATION
  Report Type: Spontaneous
  Country: US (occurrence: US)
  Receive Date: 20130304
  Receipt Date: 20130304
  Transmission Date: 20140127
  Serious: No
  Sender: FDA-Public Use
  Company Number: US-ENDO PHARMACEUTICALS INC.-VALS20110037

PATIENT
  Age: 85 None
  Sex: Male
  Weight: 74 kg

DRUGS (4)
  1. VALSTAR [Suspect]
     Indication: CARCINOMA IN SITU
     Route: 043
     Dates: start: 20110316, end: 20110426
  2. CIPRO [Suspect]
     Indication: PROPHYLAXIS
     Dosage: UNK
     Route: 065
     Dates: start: 201103, end: 2011
  3. GELNIQUE [Suspect]
     Indication: PRODUCT USED FOR UNKNOWN INDICATION
     Dosage: UNK
     Route: 065
     Dates: start: 20110127
  4. VESICARE [Suspect]
     Indication: PRODUCT USED FOR UNKNOWN INDICATION
     Dosage: 10 MG
     Route: 065
     Dates: start: 20110318, end: 20110323

REACTIONS (5)
  - Influenza like illness [Recovered/Resolved]
  - Ill-defined disorder [Recovered/Resolved]
  - Bladder dilatation [Recovered/Resolved]
  - Urinary retention [Recovered/Resolved]
  - Urinary incontinence [Unknown]
